FAERS Safety Report 15043562 (Version 5)
Quarter: 2018Q4

REPORT INFORMATION
  Report Type: Report from Study
  Country: US (occurrence: US)
  Receive Date: 20180621
  Receipt Date: 20181003
  Transmission Date: 20190204
  Serious: Yes (Hospitalization, Other)
  Sender: FDA-Public Use
  Company Number: US-GILEAD-2018-0343328

PATIENT
  Age: 73 Year
  Sex: Female
  Weight: 57.6 kg

DRUGS (14)
  1. REMODULIN [Suspect]
     Active Substance: TREPROSTINIL
     Indication: PULMONARY ARTERIAL HYPERTENSION
     Dosage: 17 UG/KG/MIN
     Route: 058
     Dates: start: 20170731
  2. REMODULIN [Suspect]
     Active Substance: TREPROSTINIL
     Dosage: UNK
     Route: 042
     Dates: start: 20180607
  3. ADCIRCA [Concomitant]
     Active Substance: TADALAFIL
  4. REMODULIN [Suspect]
     Active Substance: TREPROSTINIL
     Dosage: 8 UG/KG/MIN
     Route: 058
     Dates: start: 201703
  5. UPTRAVI [Suspect]
     Active Substance: SELEXIPAG
     Dosage: 600 UNK, BID
     Route: 048
  6. UPTRAVI [Suspect]
     Active Substance: SELEXIPAG
     Indication: PULMONARY HYPERTENSION
     Dosage: 800 UG, UNK
     Route: 048
  7. REVATIO [Concomitant]
     Active Substance: SILDENAFIL CITRATE
  8. REMODULIN [Suspect]
     Active Substance: TREPROSTINIL
     Indication: PULMONARY HYPERTENSION
     Dosage: 34 UG/KG/MIN
     Route: 058
  9. REMODULIN [Suspect]
     Active Substance: TREPROSTINIL
     Dosage: 19 UG/KG/MIN
     Route: 058
  10. AMLODIPINE                         /00972402/ [Concomitant]
     Active Substance: AMLODIPINE BESYLATE
  11. AMBRISENTAN [Suspect]
     Active Substance: AMBRISENTAN
     Indication: SCLERODERMA
     Dosage: 10 MG, QD
     Route: 048
     Dates: start: 20140613
  12. AMBRISENTAN [Suspect]
     Active Substance: AMBRISENTAN
     Indication: PULMONARY ARTERIAL HYPERTENSION
  13. UPTRAVI [Suspect]
     Active Substance: SELEXIPAG
     Dosage: 1400 UG, QD
     Route: 048
  14. WARFARIN [Concomitant]
     Active Substance: WARFARIN

REACTIONS (5)
  - Infusion site pain [Not Recovered/Not Resolved]
  - Oxygen saturation decreased [Unknown]
  - Device dislocation [Unknown]
  - Infusion site oedema [Not Recovered/Not Resolved]
  - Infusion site pruritus [Not Recovered/Not Resolved]
